FAERS Safety Report 5169041-3 (Version None)
Quarter: 2006Q4

REPORT INFORMATION
  Report Type: 
  Country: None (occurrence: None)
  Receive Date: 20061211
  Receipt Date: 20061130
  Transmission Date: 20070319
  Serious: Yes (Life-Threatening)
  Sender: FDA-Public Use
  Company Number: SE-AVENTIS-200622385GDDC

PATIENT
  Age: 50 Year
  Sex: Female

DRUGS (2)
  1. LANTUS [Suspect]
     Indication: DIABETES MELLITUS
     Dates: end: 20051005
  2. NOVORAPID [Concomitant]
     Indication: DIABETES MELLITUS
     Dates: end: 20051005

REACTIONS (6)
  - ANOXIC ENCEPHALOPATHY [None]
  - BRAIN OEDEMA [None]
  - DIABETES MELLITUS INADEQUATE CONTROL [None]
  - INTENTIONAL OVERDOSE [None]
  - MUSCLE SPASTICITY [None]
  - SUICIDE ATTEMPT [None]
